FAERS Safety Report 12398128 (Version 1)
Quarter: 2016Q2

REPORT INFORMATION
  Report Type: Spontaneous
  Country: VE (occurrence: VE)
  Receive Date: 20160524
  Receipt Date: 20160524
  Transmission Date: 20160815
  Serious: Yes (Other)
  Sender: FDA-Public Use
  Company Number: PHHY2016VE070988

PATIENT
  Sex: Female

DRUGS (3)
  1. DIOVAN HCT [Suspect]
     Active Substance: HYDROCHLOROTHIAZIDE\VALSARTAN
     Indication: BLOOD PRESSURE INCREASED
     Dosage: 1 DF (80/12.5 MG), QD
     Route: 048
     Dates: start: 1999
  2. DIOVAN HCT [Suspect]
     Active Substance: HYDROCHLOROTHIAZIDE\VALSARTAN
     Indication: ARRHYTHMIA SUPRAVENTRICULAR
     Dosage: 1 DF (160/12.5 MG), QD
     Route: 048
     Dates: start: 20160428
  3. DIOVAN HCT [Suspect]
     Active Substance: HYDROCHLOROTHIAZIDE\VALSARTAN
     Dosage: 2 DF (80/12.5 MG), QD
     Route: 048

REACTIONS (12)
  - Brain neoplasm [Recovered/Resolved]
  - Product use issue [Unknown]
  - Cough [Recovered/Resolved]
  - Headache [Recovered/Resolved]
  - Arrhythmia supraventricular [Unknown]
  - Bronchitis chronic [Recovered/Resolved]
  - Eye movement disorder [Recovered/Resolved]
  - Hypertensive crisis [Unknown]
  - Umbilical hernia [Unknown]
  - Productive cough [Unknown]
  - Ventricular tachycardia [Unknown]
  - Spinal deformity [Unknown]
